FAERS Safety Report 17795819 (Version 1)
Quarter: 2020Q2

REPORT INFORMATION
  Report Type: Spontaneous
  Country: CN (occurrence: CN)
  Receive Date: 20200516
  Receipt Date: 20200516
  Transmission Date: 20200714
  Serious: Yes (Hospitalization, Other)
  Sender: FDA-Public Use
  Company Number: CN-AXELLIA-003131

PATIENT
  Age: 67 Year
  Sex: Male

DRUGS (2)
  1. POLYMYXIN B. [Suspect]
     Active Substance: POLYMYXIN B
     Indication: PROPHYLAXIS
     Dosage: 25,000 IU/KG, DIVIDED INTO TWO DOSES, ALSO RECEIVED INTRAVENOUS
  2. TIGECYCLINE. [Concomitant]
     Active Substance: TIGECYCLINE
     Indication: PROPHYLAXIS

REACTIONS (1)
  - Respiratory failure [Unknown]
